FAERS Safety Report 7844497-3 (Version None)
Quarter: 2011Q4

REPORT INFORMATION
  Report Type: 
  Country: None (occurrence: None)
  Receive Date: 20111025
  Receipt Date: 20111020
  Transmission Date: 20120403
  Serious: Yes (Hospitalization)
  Sender: FDA-Public Use
  Company Number: US-BRISTOL-MYERS SQUIBB COMPANY-14154496

PATIENT
  Age: 61 Year
  Sex: Male
  Weight: 90 kg

DRUGS (2)
  1. CISPLATIN [Suspect]
     Indication: HEAD AND NECK CANCER
     Dosage: LAST DOSE: 24MAR08
     Route: 042
     Dates: start: 20080319
  2. ERBITUX [Suspect]
     Indication: HEAD AND NECK CANCER
     Dosage: LAST DOSE: 31MAR2008
     Route: 042
     Dates: start: 20080319

REACTIONS (7)
  - WHITE BLOOD CELL COUNT DECREASED [None]
  - CONSTIPATION [None]
  - OROPHARYNGEAL PAIN [None]
  - DEHYDRATION [None]
  - PYREXIA [None]
  - DERMATITIS ACNEIFORM [None]
  - STOMATITIS [None]
